FAERS Safety Report 10409979 (Version 1)
Quarter: 2014Q3

REPORT INFORMATION
  Report Type: Report from Study
  Country: US (occurrence: US)
  Receive Date: 20140826
  Receipt Date: 20140826
  Transmission Date: 20150326
  Serious: Yes (Hospitalization)
  Sender: FDA-Public Use
  Company Number: US-ACTELION-A-US2014-104108

PATIENT
  Age: 10 Year
  Sex: Male
  Weight: 32.2 kg

DRUGS (16)
  1. ADCIRCA [Concomitant]
     Active Substance: TADALAFIL
     Dosage: 40 MG, QD
  2. VELCADE [Concomitant]
     Active Substance: BORTEZOMIB
  3. HEPARIN [Concomitant]
     Active Substance: HEPARIN SODIUM
     Dosage: 300 U, PRN
  4. URSODIOL. [Concomitant]
     Active Substance: URSODIOL
     Dosage: 300 MG, BID
     Route: 048
  5. SILDENAFIL [Concomitant]
     Active Substance: SILDENAFIL
  6. FERROUS SULFATE [Concomitant]
     Active Substance: FERROUS SULFATE\FERROUS SULFATE, DRIED
     Dosage: 325 MG, QD
     Route: 048
  7. FUROSEMIDE. [Concomitant]
     Active Substance: FUROSEMIDE
     Dosage: 20 MG, QD
     Route: 048
  8. MAGNESIUM OXIDE. [Concomitant]
     Active Substance: MAGNESIUM OXIDE
     Dosage: 400 MG, BID
     Route: 048
  9. REMODULIN [Concomitant]
     Active Substance: TREPROSTINIL
     Dosage: 80 NG/KG, PER MIN
     Dates: start: 20140625
  10. CHLOROTHIAZIDE. [Concomitant]
     Active Substance: CHLOROTHIAZIDE
     Dosage: 500 MG, QD
     Route: 048
  11. REMODULIN [Concomitant]
     Active Substance: TREPROSTINIL
     Dosage: 60 NG/KG, PER MIN
  12. ENOXAPARIN [Concomitant]
     Active Substance: ENOXAPARIN
     Dosage: 24 MG, QD
     Route: 058
  13. PIPERACILLIN AND TAZOBACTAM [Concomitant]
     Active Substance: PIPERACILLIN SODIUM\TAZOBACTAM SODIUM
     Dosage: .375 G, Q8HR
     Route: 042
  14. POTASSIUM CHLORIDE. [Concomitant]
     Active Substance: POTASSIUM CHLORIDE
     Dosage: 20 MEQ, BID
  15. RITUXIMAB [Concomitant]
     Active Substance: RITUXIMAB
  16. TRACLEER [Suspect]
     Active Substance: BOSENTAN\BOSENTAN MONOHYDRATE
     Indication: PORTAL HYPERTENSION
     Dosage: 31.25 MG, BID
     Route: 048

REACTIONS (3)
  - Arthralgia [Unknown]
  - Pyrexia [Unknown]
  - Dyspnoea [Unknown]

NARRATIVE: CASE EVENT DATE: 20140712
